FAERS Safety Report 16608870 (Version 3)
Quarter: 2019Q3

REPORT INFORMATION
  Report Type: Spontaneous
  Country: US (occurrence: US)
  Receive Date: 20190722
  Receipt Date: 20190903
  Transmission Date: 20191004
  Serious: No
  Sender: FDA-Public Use
  Company Number: US-PFIZER INC-2019308887

PATIENT
  Age: 32 Year
  Sex: Male
  Weight: 122 kg

DRUGS (4)
  1. EFFEXOR XR [Suspect]
     Active Substance: VENLAFAXINE HYDROCHLORIDE
     Indication: DEPRESSION
     Dosage: 225 MG, 1X/DAY
     Route: 048
     Dates: start: 2018
  2. LATUDA [Suspect]
     Active Substance: LURASIDONE HYDROCHLORIDE
     Indication: BIPOLAR II DISORDER
     Dosage: 20 MG, 1X/DAY [EVERY NIGHT AT BEDTIME]
     Route: 048
     Dates: start: 20190520, end: 2019
  3. LATUDA [Suspect]
     Active Substance: LURASIDONE HYDROCHLORIDE
     Dosage: 40 MG, 1X/DAY
     Route: 048
     Dates: start: 20190603, end: 201906
  4. LATUDA [Suspect]
     Active Substance: LURASIDONE HYDROCHLORIDE
     Dosage: 60 MG, 1X/DAY (NONE AT 20 MG AND 40 MG)[EVERY NIGHT AT BEDTIME]
     Route: 048
     Dates: start: 20190610, end: 2019

REACTIONS (4)
  - Hot flush [Recovered/Resolved]
  - Becker^s muscular dystrophy [Unknown]
  - Tremor [Recovered/Resolved]
  - Temperature intolerance [Recovered/Resolved]

NARRATIVE: CASE EVENT DATE: 20190610
